FAERS Safety Report 7925228-5 (Version None)
Quarter: 2011Q4

REPORT INFORMATION
  Report Type: 
  Country: None (occurrence: None)
  Receive Date: 20111118
  Receipt Date: 20110404
  Transmission Date: 20120403
  Serious: No
  Sender: FDA-Public Use
  Company Number: US-AMGEN-USASP2011017829

PATIENT
  Age: 71 Year
  Sex: Female
  Weight: 52.154 kg

DRUGS (11)
  1. RESTASIS [Concomitant]
     Dosage: 0.05 %, UNK
  2. VOLTAREN [Concomitant]
     Dosage: 25 MG, UNK
  3. CARBIDOPA AND LEVODOPA [Concomitant]
     Dosage: 25 MG, UNK
  4. TRIAM [Concomitant]
     Dosage: 50 MG, UNK
  5. HYDROCHLOROTHIAZIDE [Concomitant]
     Dosage: 25 MG, UNK
  6. PREVACID [Concomitant]
     Dosage: 15 MG, UNK
  7. VICODIN [Concomitant]
     Dosage: 500 MG, UNK
  8. CLONAZEPAM [Concomitant]
     Dosage: 1 MG, UNK
  9. CITALOPRAM HYDROBROMIDE [Concomitant]
     Dosage: 10 MG, UNK
  10. LEVOTHYROXINE SODIUM [Concomitant]
     Dosage: 0.100 UNK, UNK
  11. ENBREL [Suspect]
     Indication: PRODUCT USED FOR UNKNOWN INDICATION
     Dosage: 50 MG, QWK

REACTIONS (1)
  - INJECTION SITE ERYTHEMA [None]
